FAERS Safety Report 9580796 (Version 1)
Quarter: 2013Q4

REPORT INFORMATION
  Report Type: Spontaneous
  Country: US (occurrence: US)
  Receive Date: 20131002
  Receipt Date: 20131002
  Transmission Date: 20140711
  Serious: No
  Sender: FDA-Public Use
  Company Number: US-009507513-1310USA000199

PATIENT
  Sex: Male

DRUGS (2)
  1. CORICIDIN HBP NIGHTTIME MULTI-SYMPTOM LIQUID [Suspect]
     Indication: RHINORRHOEA
     Dosage: UNK UNK, TIW
     Route: 048
  2. CORICIDIN HBP NIGHTTIME MULTI-SYMPTOM LIQUID [Suspect]
     Indication: SLEEP DISORDER

REACTIONS (2)
  - Drug ineffective for unapproved indication [Unknown]
  - Product taste abnormal [Unknown]
